FAERS Safety Report 9336405 (Version 1)
Quarter: 2013Q2

REPORT INFORMATION
  Report Type: Spontaneous
  Country: US (occurrence: US)
  Receive Date: 20130607
  Receipt Date: 20130607
  Transmission Date: 20140414
  Serious: Yes (Hospitalization)
  Sender: FDA-Public Use
  Company Number: US-JNJFOC-20130602411

PATIENT
  Age: 52 Year
  Sex: Female
  Weight: 88.45 kg

DRUGS (5)
  1. INVEGA SUSTENNA [Suspect]
     Indication: PSYCHOTIC DISORDER
     Route: 030
     Dates: start: 20121125
  2. INVEGA SUSTENNA [Suspect]
     Indication: PSYCHOTIC DISORDER
     Route: 030
     Dates: start: 20121120
  3. DICLOFENAC [Concomitant]
     Indication: ARTHRITIS
     Route: 065
     Dates: start: 20121130
  4. DEPAKOTE ER [Concomitant]
     Indication: SCHIZOAFFECTIVE DISORDER
     Dosage: QHS(EVERY NIGHT- HOUR OF SLEEP)
     Route: 065
     Dates: start: 20121130
  5. ZOLOFT [Concomitant]
     Indication: AFFECTIVE DISORDER
     Dosage: QDAY
     Route: 065
     Dates: start: 20121202

REACTIONS (2)
  - Akathisia [Recovered/Resolved]
  - Treatment noncompliance [Unknown]
